FAERS Safety Report 16321056 (Version 4)
Quarter: 2023Q4

REPORT INFORMATION
  Report Type: Spontaneous
  Country: US (occurrence: US)
  Receive Date: 20190516
  Receipt Date: 20231127
  Transmission Date: 20240110
  Serious: Yes (Hospitalization, Other)
  Sender: FDA-Public Use
  Company Number: US-GILEAD-2019-0407712

PATIENT
  Age: 44 Year
  Sex: Female
  Weight: 62.585 kg

DRUGS (49)
  1. COMPLERA [Suspect]
     Active Substance: EMTRICITABINE\RILPIVIRINE HYDROCHLORIDE\TENOFOVIR DISOPROXIL FUMARATE
     Indication: HIV infection
     Dosage: UNK
     Route: 048
     Dates: start: 20140224, end: 2016
  2. COMPLERA [Suspect]
     Active Substance: EMTRICITABINE\RILPIVIRINE HYDROCHLORIDE\TENOFOVIR DISOPROXIL FUMARATE
     Dosage: UNK
     Route: 048
     Dates: start: 20140224, end: 201503
  3. TRUVADA [Suspect]
     Active Substance: EMTRICITABINE\TENOFOVIR DISOPROXIL FUMARATE
     Indication: HIV infection
     Dosage: UNK
     Route: 048
     Dates: start: 20130104, end: 201402
  4. MECLIZINE [Concomitant]
     Active Substance: MECLIZINE HYDROCHLORIDE
  5. VALACYCLOVIR [Concomitant]
     Active Substance: VALACYCLOVIR HYDROCHLORIDE
  6. LOSARTAN [Concomitant]
     Active Substance: LOSARTAN
  7. PRAVASTATIN [Concomitant]
     Active Substance: PRAVASTATIN
  8. HYDROCHLOROTHIAZIDE [Concomitant]
     Active Substance: HYDROCHLOROTHIAZIDE
  9. CYCLOBENZAPRINE [Concomitant]
     Active Substance: CYCLOBENZAPRINE
  10. ESTRADIOL [Concomitant]
     Active Substance: ESTRADIOL
  11. LEVOCETIRIZINE [Concomitant]
     Active Substance: LEVOCETIRIZINE
  12. ESOMEPRAZOLE [Concomitant]
     Active Substance: ESOMEPRAZOLE
  13. BACLOFEN [Concomitant]
     Active Substance: BACLOFEN
  14. SUMATRIPTAN [Concomitant]
     Active Substance: SUMATRIPTAN
  15. CIPROFLOXACIN [Concomitant]
     Active Substance: CIPROFLOXACIN
  16. ALUMINUM HYDROXIDE\DICYCLOMINE HYDROCHLORIDE\MAGNESIUM OXIDE [Concomitant]
     Active Substance: ALUMINUM HYDROXIDE\DICYCLOMINE HYDROCHLORIDE\MAGNESIUM OXIDE
  17. BUTALBITAL AND ACETAMINOPHEN [Concomitant]
     Active Substance: ACETAMINOPHEN\BUTALBITAL
  18. AMLODIPINE BESYLATE [Concomitant]
     Active Substance: AMLODIPINE BESYLATE
  19. BENZONATATE [Concomitant]
     Active Substance: BENZONATATE
  20. TRAMADOL [Concomitant]
     Active Substance: TRAMADOL\TRAMADOL HYDROCHLORIDE
  21. CEPHALEXIN [Concomitant]
     Active Substance: CEPHALEXIN
  22. MELOXICAM [Concomitant]
     Active Substance: MELOXICAM
  23. BACTRIM [Concomitant]
     Active Substance: SULFAMETHOXAZOLE\TRIMETHOPRIM
  24. METRONIDAZOLE [Concomitant]
     Active Substance: METRONIDAZOLE
  25. CLINDAMYCIN [Concomitant]
     Active Substance: CLINDAMYCIN
  26. KETOROLAC [Concomitant]
     Active Substance: KETOROLAC TROMETHAMINE
  27. LOPERAMIDE [Concomitant]
     Active Substance: LOPERAMIDE
  28. CYPROHEPTADINE [Concomitant]
     Active Substance: CYPROHEPTADINE
  29. TIZANIDINE [Concomitant]
     Active Substance: TIZANIDINE
  30. FERRALET [FERROUS GLUCONATE] [Concomitant]
  31. TAMIFLU [Concomitant]
     Active Substance: OSELTAMIVIR PHOSPHATE
  32. NAPROXEN SODIUM [Concomitant]
     Active Substance: NAPROXEN\NAPROXEN SODIUM
  33. ONDANSETRON [Concomitant]
     Active Substance: ONDANSETRON
  34. DOCQLACE [Concomitant]
     Active Substance: DOCUSATE SODIUM
  35. LUNESTA [Concomitant]
     Active Substance: ESZOPICLONE
  36. NEXIUM I.V. [Concomitant]
     Active Substance: ESOMEPRAZOLE SODIUM
  37. FLOVENT [Concomitant]
     Active Substance: FLUTICASONE PROPIONATE
  38. FUROSEMIDE [Concomitant]
     Active Substance: FUROSEMIDE
  39. IBUPROFEN [Concomitant]
     Active Substance: IBUPROFEN
  40. BRIOSCHI [Concomitant]
  41. ISENTRESS [Concomitant]
     Active Substance: RALTEGRAVIR POTASSIUM
  42. KALETRA [Concomitant]
     Active Substance: LOPINAVIR\RITONAVIR
  43. NORVIR [Concomitant]
     Active Substance: RITONAVIR
  44. PREZISTA [Concomitant]
     Active Substance: DARUNAVIR ETHANOLATE
  45. RETROVIR [Concomitant]
     Active Substance: ZIDOVUDINE
  46. REYATAZ [Concomitant]
     Active Substance: ATAZANAVIR SULFATE
  47. SUSTIVA [Concomitant]
     Active Substance: EFAVIRENZ
  48. TIVICAY [Concomitant]
     Active Substance: DOLUTEGRAVIR SODIUM
  49. VIDEX EC [Concomitant]
     Active Substance: DIDANOSINE

REACTIONS (14)
  - Chronic kidney disease [Not Recovered/Not Resolved]
  - Renal failure [Not Recovered/Not Resolved]
  - Fanconi syndrome acquired [Not Recovered/Not Resolved]
  - Chronic kidney disease [Not Recovered/Not Resolved]
  - Renal tubular acidosis [Not Recovered/Not Resolved]
  - Hypokalaemia [Not Recovered/Not Resolved]
  - Acidosis hyperchloraemic [Not Recovered/Not Resolved]
  - Pain [Not Recovered/Not Resolved]
  - Emotional distress [Not Recovered/Not Resolved]
  - Anxiety [Not Recovered/Not Resolved]
  - Anhedonia [Not Recovered/Not Resolved]
  - Economic problem [Unknown]
  - Fatigue [Unknown]
  - Asthenia [Unknown]

NARRATIVE: CASE EVENT DATE: 20130301
